FAERS Safety Report 5929214-6 (Version None)
Quarter: 2008Q4

REPORT INFORMATION
  Report Type: 
  Country: None (occurrence: None)
  Receive Date: 20081020
  Receipt Date: 20080221
  Transmission Date: 20090506
  Serious: Yes (Life-Threatening)
  Sender: FDA-Public Use
  Company Number: 2008-00202FE

PATIENT
  Age: 63 Year
  Sex: Female

DRUGS (1)
  1. ACTHREL [Suspect]
     Indication: DIAGNOSTIC PROCEDURE
     Dosage: IV
     Route: 042
     Dates: start: 20080115, end: 20080115

REACTIONS (3)
  - BLOOD PRESSURE IMMEASURABLE [None]
  - BRADYCARDIA [None]
  - LOSS OF CONSCIOUSNESS [None]
